FAERS Safety Report 8935386 (Version 1)
Quarter: 2012Q4

REPORT INFORMATION
  Report Type: Spontaneous
  Country: US (occurrence: None)
  Receive Date: 20121127
  Receipt Date: 20121127
  Transmission Date: 20130627
  Serious: No
  Sender: FDA-Public Use
  Company Number: None

PATIENT
  Age: 18 None
  Sex: Female
  Weight: 18 kg

DRUGS (2)
  1. MONTELUKAST [Suspect]
     Indication: ASTHMA
     Route: 048
     Dates: start: 20121119
  2. MONTELUKAST [Suspect]
     Indication: ALLERGIC RHINITIS
     Route: 048
     Dates: start: 20121119

REACTIONS (1)
  - Device occlusion [None]
